FAERS Safety Report 10444926 (Version 3)
Quarter: 2014Q4

REPORT INFORMATION
  Report Type: Report from Study
  Country: CA (occurrence: CA)
  Receive Date: 20140910
  Receipt Date: 20141027
  Transmission Date: 20150528
  Serious: Yes (Other)
  Sender: FDA-Public Use
  Company Number: PHHY2014CA102313

PATIENT
  Age: 35 Year
  Sex: Female

DRUGS (1)
  1. GILENYA [Suspect]
     Active Substance: FINGOLIMOD HYDROCHLORIDE
     Indication: RELAPSING-REMITTING MULTIPLE SCLEROSIS
     Dosage: 0.5 MG, QD
     Route: 048
     Dates: start: 20140813, end: 20140821

REACTIONS (5)
  - Fatigue [Recovering/Resolving]
  - Heart rate irregular [Unknown]
  - Bradycardia [Unknown]
  - Ventricular extrasystoles [Unknown]
  - Presyncope [Unknown]

NARRATIVE: CASE EVENT DATE: 20140813
